FAERS Safety Report 12240193 (Version 1)
Quarter: 2016Q2

REPORT INFORMATION
  Report Type: Report from Study
  Country: BR (occurrence: BR)
  Receive Date: 20160405
  Receipt Date: 20160405
  Transmission Date: 20160815
  Serious: Yes (Other)
  Sender: FDA-Public Use
  Company Number: BR-EMD SERONO-8075430

PATIENT
  Sex: Male

DRUGS (2)
  1. IBUPROFEN. [Concomitant]
     Active Substance: IBUPROFEN
     Indication: PROPHYLAXIS
  2. REBIF [Suspect]
     Active Substance: INTERFERON BETA-1A
     Indication: MULTIPLE SCLEROSIS
     Dates: start: 2010

REACTIONS (8)
  - Injection site swelling [Unknown]
  - Autoimmune thyroiditis [Unknown]
  - Injection site pain [Not Recovered/Not Resolved]
  - Injury associated with device [Unknown]
  - Injection site erythema [Not Recovered/Not Resolved]
  - Injection site hypersensitivity [Not Recovered/Not Resolved]
  - Injection site bruising [Unknown]
  - Injection site haemorrhage [Unknown]
